FAERS Safety Report 7048424-0 (Version None)
Quarter: 2010Q4

REPORT INFORMATION
  Report Type: 
  Country: None (occurrence: None)
  Receive Date: 20101015
  Receipt Date: 20101015
  Transmission Date: 20110411
  Serious: Yes (Other)
  Sender: FDA-Public Use
  Company Number: None

PATIENT
  Sex: Female
  Weight: 81.6475 kg

DRUGS (1)
  1. METFORMIN HCL [Suspect]
     Indication: TYPE 2 DIABETES MELLITUS
     Dosage: 500 MG 2/2X
     Dates: start: 20100808, end: 20100921

REACTIONS (4)
  - DIZZINESS [None]
  - HEADACHE [None]
  - NAUSEA [None]
  - PRODUCT FORMULATION ISSUE [None]
